FAERS Safety Report 7371623-5 (Version None)
Quarter: 2011Q1

REPORT INFORMATION
  Report Type: 
  Country: None (occurrence: None)
  Receive Date: 20110324
  Receipt Date: 20110316
  Transmission Date: 20110831
  Serious: Yes (Hospitalization)
  Sender: FDA-Public Use
  Company Number: AU-GENZYME-CLOF-1001416

PATIENT
  Sex: Male

DRUGS (2)
  1. ONDANSETRON [Suspect]
     Indication: PRODUCT USED FOR UNKNOWN INDICATION
     Dosage: UNK
  2. CLOLAR [Suspect]
     Indication: PRODUCT USED FOR UNKNOWN INDICATION
     Dosage: 20 MG/M2, QDX5
     Route: 042
     Dates: start: 20110118, end: 20110122

REACTIONS (3)
  - CONSTIPATION [None]
  - FEBRILE NEUTROPENIA [None]
  - URINARY RETENTION [None]
